FAERS Safety Report 5943184-6 (Version None)
Quarter: 2008Q4

REPORT INFORMATION
  Report Type: 
  Country: None (occurrence: None)
  Receive Date: 20081106
  Receipt Date: 20081031
  Transmission Date: 20090506
  Serious: Yes (Hospitalization)
  Sender: FDA-Public Use
  Company Number: A0755215A

PATIENT
  Age: 52 Year
  Sex: Male
  Weight: 79.1 kg

DRUGS (8)
  1. AVANDIA [Suspect]
     Dosage: 4MG TWICE PER DAY
     Route: 048
     Dates: start: 20020101, end: 20061001
  2. AVANDAMET [Suspect]
     Route: 048
     Dates: start: 20070201, end: 20070501
  3. ISOSORBIDE [Concomitant]
     Dates: start: 20060201
  4. NITROGLYCERIN [Concomitant]
     Dates: start: 20060201
  5. SYNTHROID [Concomitant]
  6. COREG [Concomitant]
     Dates: start: 20060201
  7. INDERAL [Concomitant]
     Dates: start: 20060201
  8. STARLIX [Concomitant]
     Dates: start: 20050101, end: 20060101

REACTIONS (6)
  - CHEST PAIN [None]
  - DIZZINESS [None]
  - DYSPNOEA [None]
  - MYOCARDIAL INFARCTION [None]
  - MYOCARDIAL ISCHAEMIA [None]
  - VISION BLURRED [None]
